FAERS Safety Report 4498453-6 (Version None)
Quarter: 2004Q4

REPORT INFORMATION
  Report Type: 
  Country: None (occurrence: None)
  Receive Date: 20041105
  Receipt Date: 20041027
  Transmission Date: 20050328
  Serious: Yes (Hospitalization)
  Sender: FDA-Public Use
  Company Number: 2004083568

PATIENT
  Age: 30 Year
  Sex: Female

DRUGS (2)
  1. ZITHROMAX [Suspect]
     Indication: TONSILLITIS STREPTOCOCCAL
     Dosage: 500 MG (250 MG, 1 D), ORAL
     Route: 048
     Dates: start: 20040906
  2. ACETAMINOPHEN [Concomitant]

REACTIONS (3)
  - CELLULITIS [None]
  - DRUG INEFFECTIVE [None]
  - TONSILLAR DISORDER [None]
